FAERS Safety Report 5567184-3 (Version None)
Quarter: 2007Q4

REPORT INFORMATION
  Report Type: 
  Country: None (occurrence: None)
  Receive Date: 20071219
  Receipt Date: 20071214
  Transmission Date: 20080405
  Serious: Yes (Other)
  Sender: FDA-Public Use
  Company Number: JP-ELI_LILLY_AND_COMPANY-JP200711006144

PATIENT
  Age: 15 Year
  Sex: Male

DRUGS (1)
  1. HUMATROPE [Suspect]
     Indication: HYPOPITUITARISM
     Route: 058

REACTIONS (1)
  - EPIPHYSIOLYSIS [None]
